FAERS Safety Report 10399212 (Version 1)
Quarter: 2014Q3

REPORT INFORMATION
  Report Type: Spontaneous
  Country: FR (occurrence: FR)
  Receive Date: 20140821
  Receipt Date: 20140821
  Transmission Date: 20150326
  Serious: Yes (Hospitalization)
  Sender: FDA-Public Use
  Company Number: FR-JNJFOC-20140804752

PATIENT
  Sex: Female

DRUGS (6)
  1. CAELYX [Suspect]
     Active Substance: DOXORUBICIN HYDROCHLORIDE
     Indication: BREAST CANCER
     Route: 042
     Dates: start: 20140321, end: 20140321
  2. COVERAM [Concomitant]
     Active Substance: AMLODIPINE\PERINDOPRIL
     Route: 065
  3. CAELYX [Suspect]
     Active Substance: DOXORUBICIN HYDROCHLORIDE
     Indication: BREAST CANCER
     Dosage: 100MG
     Route: 042
     Dates: start: 20140221
  4. VITAMIN PP [Concomitant]
     Route: 065
     Dates: start: 201404
  5. XGEVA [Concomitant]
     Active Substance: DENOSUMAB
     Route: 065
  6. VITAMIN B6 [Concomitant]
     Active Substance: PYRIDOXINE HYDROCHLORIDE
     Route: 065
     Dates: start: 201404

REACTIONS (9)
  - Pruritus [Recovering/Resolving]
  - Palmar-plantar erythrodysaesthesia syndrome [Recovering/Resolving]
  - Hyperkeratosis [Recovering/Resolving]
  - Mucosal inflammation [Recovering/Resolving]
  - Perineal erythema [Recovering/Resolving]
  - Keratosis follicular [Recovering/Resolving]
  - Eye burns [Recovering/Resolving]
  - Asthenia [Recovering/Resolving]
  - Erythema [Not Recovered/Not Resolved]

NARRATIVE: CASE EVENT DATE: 2014
